FAERS Safety Report 4501207-5 (Version None)
Quarter: 2004Q3

REPORT INFORMATION
  Report Type: 
  Country: None (occurrence: None)
  Receive Date: 20040927
  Receipt Date: 20040816
  Transmission Date: 20050211
  Serious: No
  Sender: FDA-Public Use
  Company Number: USA040875543

PATIENT
  Age: 6 Year
  Sex: Female
  Weight: 27 kg

DRUGS (1)
  1. STRATTERA [Suspect]
     Indication: ATTENTION DEFICIT/HYPERACTIVITY DISORDER
     Dosage: 25 MG DAY
     Dates: start: 20030401, end: 20040701

REACTIONS (3)
  - ABDOMINAL PAIN UPPER [None]
  - ATTENTION DEFICIT/HYPERACTIVITY DISORDER [None]
  - SOMNOLENCE [None]
